FAERS Safety Report 9235593 (Version 2)
Quarter: 2013Q2

REPORT INFORMATION
  Report Type: Report from Study
  Country: CA (occurrence: CA)
  Receive Date: 20130417
  Receipt Date: 20130613
  Transmission Date: 20140414
  Serious: Yes (Hospitalization)
  Sender: FDA-Public Use
  Company Number: CA-JNJFOC-20130401702

PATIENT
  Age: 64 Year
  Sex: Male
  Weight: 100.6 kg

DRUGS (20)
  1. REMICADE [Suspect]
     Indication: CROHN^S DISEASE
     Route: 042
     Dates: start: 20030923
  2. VITAMIN D [Concomitant]
     Route: 065
  3. DOXEPIN [Concomitant]
     Route: 065
  4. CELEXA [Concomitant]
     Route: 065
  5. PARIET [Concomitant]
     Route: 065
  6. FOLIC ACID [Concomitant]
     Route: 065
  7. LASIX [Concomitant]
     Route: 065
  8. CALCIUM [Concomitant]
     Route: 065
  9. RAMIPRIL [Concomitant]
     Route: 065
  10. PLAVIX [Concomitant]
     Route: 065
  11. PANTOLOC [Concomitant]
     Route: 065
  12. LOPRESSOR [Concomitant]
     Route: 065
  13. EFFEXOR [Concomitant]
     Route: 065
  14. VITAMIN B [Concomitant]
     Route: 065
  15. MIRTAZAPINE [Concomitant]
     Route: 065
  16. LIPITOR [Concomitant]
     Route: 065
  17. ATIVAN [Concomitant]
     Route: 065
  18. NITROGLYCERIN [Concomitant]
     Route: 065
  19. TOCOPHEROL [Concomitant]
     Route: 065
  20. VITAMIN B12 [Concomitant]
     Route: 065

REACTIONS (2)
  - Myocardial infarction [Recovering/Resolving]
  - Crohn^s disease [Recovering/Resolving]
